FAERS Safety Report 4532239-9 (Version None)
Quarter: 2004Q4

REPORT INFORMATION
  Report Type: 
  Country: None (occurrence: None)
  Receive Date: 20041206
  Receipt Date: 20040917
  Transmission Date: 20050328
  Serious: No
  Sender: FDA-Public Use
  Company Number: USA040978586

PATIENT
  Age: 38 Year
  Sex: Male

DRUGS (4)
  1. CYMBALTA [Suspect]
     Indication: DEPRESSION
     Dosage: 30 MG DAY
     Dates: start: 20040903, end: 20040909
  2. OXYCONTIN [Concomitant]
  3. OXYCODONE HCL [Concomitant]
  4. KEFLEX [Concomitant]

REACTIONS (3)
  - NAUSEA [None]
  - NIGHT SWEATS [None]
  - NIGHTMARE [None]
